FAERS Safety Report 21496686 (Version 3)
Quarter: 2023Q2

REPORT INFORMATION
  Report Type: Spontaneous
  Country: US (occurrence: US)
  Receive Date: 20221022
  Receipt Date: 20230413
  Transmission Date: 20230722
  Serious: Yes (Other)
  Sender: FDA-Public Use
  Company Number: US-NOVARTISTESTPH-NVSC2022US238169

PATIENT
  Sex: Female

DRUGS (2)
  1. VOTRIENT [Suspect]
     Active Substance: PAZOPANIB HYDROCHLORIDE
     Indication: Bone cancer
     Dosage: 800 MG, QD
     Route: 048
     Dates: start: 20220920
  2. VOTRIENT [Suspect]
     Active Substance: PAZOPANIB HYDROCHLORIDE
     Indication: Infertility female
     Dosage: 800 MG, QD
     Route: 048

REACTIONS (8)
  - Bone cancer [Unknown]
  - Malignant neoplasm progression [Unknown]
  - Skin discolouration [Unknown]
  - Diarrhoea [Unknown]
  - Hair colour changes [Unknown]
  - Erythema [Unknown]
  - Skin irritation [Unknown]
  - Product use in unapproved indication [Unknown]
